FAERS Safety Report 21877981 (Version 1)
Quarter: 2023Q1

REPORT INFORMATION
  Report Type: Report from Study
  Country: US (occurrence: US)
  Receive Date: 20230118
  Receipt Date: 20230118
  Transmission Date: 20230418
  Serious: No
  Sender: FDA-Public Use
  Company Number: US-ABBVIE-4241212

PATIENT
  Sex: Female

DRUGS (1)
  1. SKYRIZI [Suspect]
     Active Substance: RISANKIZUMAB-RZAA
     Indication: Psoriasis
     Dosage: THE ONSET OF THE EVENT OF COLD WAS 2022 AND FLU WAS ON NOV 2022.
     Route: 058
     Dates: start: 20221111

REACTIONS (2)
  - Influenza [Recovering/Resolving]
  - Nasopharyngitis [Unknown]
